FAERS Safety Report 18434495 (Version 3)
Quarter: 2021Q2

REPORT INFORMATION
  Report Type: Report from Study
  Country: US (occurrence: US)
  Receive Date: 20201028
  Receipt Date: 20210420
  Transmission Date: 20210717
  Serious: Yes (Hospitalization, Other)
  Sender: FDA-Public Use
  Company Number: US-INSMED, INC.-US-INS-20-01456

PATIENT
  Age: 93 Year
  Sex: Female

DRUGS (3)
  1. ARIKAYCE [Suspect]
     Active Substance: AMIKACIN
     Dosage: 590 MILLIGRAM
     Route: 055
     Dates: start: 202007, end: 2020
  2. ARIKAYCE [Suspect]
     Active Substance: AMIKACIN
     Indication: MYCOBACTERIAL INFECTION
     Dosage: 590 MILLIGRAM, QD
     Route: 055
     Dates: start: 202007, end: 202007
  3. ARIKAYCE [Suspect]
     Active Substance: AMIKACIN
     Dosage: 590 MILLIGRAM
     Route: 055
     Dates: start: 2020

REACTIONS (17)
  - Asthenia [Not Recovered/Not Resolved]
  - Blood creatinine increased [Recovering/Resolving]
  - Hypotension [Not Recovered/Not Resolved]
  - Intentional dose omission [Unknown]
  - Product dose omission issue [Unknown]
  - Aphonia [Recovering/Resolving]
  - Drug dose omission by device [Unknown]
  - Off label use [Unknown]
  - Fall [Unknown]
  - Dehydration [Unknown]
  - Somnolence [Unknown]
  - Dizziness [Unknown]
  - Hospitalisation [Unknown]
  - Dysphonia [Recovering/Resolving]
  - Device issue [Unknown]
  - Cough [Not Recovered/Not Resolved]
  - Therapy interrupted [Unknown]

NARRATIVE: CASE EVENT DATE: 2020
